FAERS Safety Report 8208564-7 (Version None)
Quarter: 2012Q1

REPORT INFORMATION
  Report Type: 
  Country: None (occurrence: None)
  Receive Date: 20120314
  Receipt Date: 20120308
  Transmission Date: 20120608
  Serious: Yes (Death, Hospitalization)
  Sender: FDA-Public Use
  Company Number: US-GLAXOSMITHKLINE-A0969140A

PATIENT
  Age: 61 Year
  Sex: Male

DRUGS (9)
  1. FLUCONAZOLE [Concomitant]
  2. HYDROCODONE BITARTRATE [Concomitant]
  3. AZITHROMYCIN [Concomitant]
  4. TRAMADOL HCL [Concomitant]
  5. PROAIR HFA [Concomitant]
  6. OMEPRAZOLE [Concomitant]
  7. FLOMAX [Concomitant]
  8. BACTRIM DS [Concomitant]
  9. VENTOLIN [Suspect]
     Indication: PRODUCT USED FOR UNKNOWN INDICATION
     Dosage: 2PUFF TWICE PER DAY
     Route: 055
     Dates: start: 20090106

REACTIONS (1)
  - DEATH [None]
